FAERS Safety Report 10223109 (Version 1)
Quarter: 2014Q2

REPORT INFORMATION
  Report Type: Spontaneous
  Country: US (occurrence: US)
  Receive Date: 20140607
  Receipt Date: 20140607
  Transmission Date: 20141212
  Serious: Yes (Hospitalization)
  Sender: FDA-Public Use
  Company Number: PHHY2014US066802

PATIENT
  Age: 27 Year
  Sex: Female

DRUGS (5)
  1. WARFARIN [Suspect]
     Indication: SUICIDE ATTEMPT
     Dosage: 60 DF, UNK
  2. OXYCODONE+PARACETAMOL [Suspect]
     Indication: SUICIDE ATTEMPT
  3. IBUPROFEN [Suspect]
     Indication: SUICIDE ATTEMPT
  4. NAPROXEN [Suspect]
     Indication: SUICIDE ATTEMPT
  5. NORTRIPTYLINE [Suspect]
     Indication: SUICIDE ATTEMPT

REACTIONS (8)
  - Sedation [Recovered/Resolved]
  - Miosis [Recovered/Resolved]
  - Tachycardia [Recovered/Resolved]
  - Gastrointestinal sounds abnormal [Recovered/Resolved]
  - International normalised ratio increased [Recovered/Resolved]
  - Suicide attempt [Recovered/Resolved]
  - Drug level increased [Recovered/Resolved]
  - Overdose [Recovered/Resolved]
